FAERS Safety Report 7314226-0 (Version None)
Quarter: 2011Q1

REPORT INFORMATION
  Report Type: 
  Country: None (occurrence: None)
  Receive Date: 20110225
  Receipt Date: 20100611
  Transmission Date: 20110831
  Serious: No
  Sender: FDA-Public Use
  Company Number: US-MYLANLABS-2010S1010541

PATIENT
  Age: 17 Year
  Sex: Female

DRUGS (3)
  1. AMNESTEEM [Suspect]
     Route: 048
     Dates: start: 20100601, end: 20100611
  2. AMNESTEEM [Suspect]
     Indication: ACNE
     Route: 048
     Dates: end: 20100601
  3. CLARAVIS [Suspect]
     Indication: ACNE
     Dates: start: 20100301

REACTIONS (2)
  - CONTUSION [None]
  - LIP SWELLING [None]
